FAERS Safety Report 8810968 (Version 3)
Quarter: 2012Q4

REPORT INFORMATION
  Report Type: 
  Country: US (occurrence: US)
  Receive Date: 20120927
  Receipt Date: 20121130
  Transmission Date: 20130627
  Serious: Yes (Hospitalization)
  Sender: FDA-Public Use
  Company Number: US-AMGEN-USASP2012060651

PATIENT
  Age: 54 Year
  Sex: Female
  Weight: 50.79 kg

DRUGS (4)
  1. ENBREL [Suspect]
     Indication: RHEUMATOID ARTHRITIS
     Dosage: 25 mg, qwk
     Route: 058
     Dates: start: 20101115
  2. METHOTREXATE [Concomitant]
     Indication: RHEUMATOID ARTHRITIS
     Dosage: 20 mg, qwk
     Route: 048
  3. MELOXICAM [Concomitant]
     Indication: RHEUMATOID ARTHRITIS
     Dosage: 7.5-15mg day
     Route: 048
  4. PREDNISONE [Concomitant]
     Indication: RHEUMATOID ARTHRITIS
     Dosage: 6 mg, day
     Route: 048

REACTIONS (8)
  - Arthralgia [Recovered/Resolved]
  - Mobility decreased [Recovered/Resolved]
  - Motor dysfunction [Recovered/Resolved]
  - Oedema peripheral [Recovered/Resolved]
  - Arthropathy [Recovered/Resolved]
  - Pain in extremity [Recovered/Resolved]
  - Rheumatoid arthritis [Unknown]
  - Injection site reaction [Recovered/Resolved]
